FAERS Safety Report 9558274 (Version 1)
Quarter: 2013Q3

REPORT INFORMATION
  Report Type: Spontaneous
  Country: FR (occurrence: FR)
  Receive Date: 20130926
  Receipt Date: 20130926
  Transmission Date: 20140515
  Serious: Yes (Hospitalization)
  Sender: FDA-Public Use
  Company Number: FR-ASTRAZENECA-2013SE70162

PATIENT
  Age: 34 Year
  Sex: Male

DRUGS (6)
  1. DIPRIVAN [Suspect]
     Indication: INDUCTION OF ANAESTHESIA
     Dosage: ONCE/SINGLE ADMINISTRATION
     Route: 042
     Dates: start: 20130211, end: 20130211
  2. SUFENTA [Suspect]
     Indication: INDUCTION OF ANAESTHESIA
     Dosage: ONCE/SINGLE ADMINISTRATION
     Route: 042
     Dates: start: 20130211, end: 20130211
  3. TRACRIUM [Suspect]
     Indication: INDUCTION OF ANAESTHESIA
     Dosage: ONCE/SINGLE ADMINISTRATION
     Route: 042
     Dates: start: 20130211, end: 20130211
  4. SEVORANE [Suspect]
     Indication: INDUCTION OF ANAESTHESIA
     Dosage: ONCE/SINGLE ADMINISTRATION
     Route: 055
     Dates: start: 20130211, end: 20130211
  5. KETAMINE PANPHARMA [Suspect]
     Indication: INDUCTION OF ANAESTHESIA
     Dosage: ONCE/SINGLE ADMINISTRATION
     Route: 042
     Dates: start: 20130211, end: 20130211
  6. CEFAZOLINE PANPHARMA [Suspect]
     Indication: ANTIBIOTIC PROPHYLAXIS
     Route: 065

REACTIONS (2)
  - Circulatory collapse [Recovered/Resolved]
  - Erythema [Unknown]
